FAERS Safety Report 13955708 (Version 5)
Quarter: 2018Q4

REPORT INFORMATION
  Report Type: Spontaneous
  Country: US (occurrence: US)
  Receive Date: 20170911
  Receipt Date: 20181026
  Transmission Date: 20190204
  Serious: Yes (Hospitalization, Other)
  Sender: FDA-Public Use
  Company Number: US-DSJP-DSU-2017-136265

PATIENT

DRUGS (2)
  1. AZOR [Suspect]
     Active Substance: AMLODIPINE BESYLATE\OLMESARTAN MEDOXOMIL
     Dosage: 10/20 MG, QD
     Route: 048
     Dates: start: 20100813, end: 20170901
  2. AZOR [Suspect]
     Active Substance: AMLODIPINE BESYLATE\OLMESARTAN MEDOXOMIL
     Indication: HYPERTENSION
     Dosage: 10/40 MG, QD
     Route: 048
     Dates: start: 20100813, end: 20170901

REACTIONS (8)
  - Diarrhoea [Recovered/Resolved]
  - Rectal haemorrhage [Unknown]
  - Diverticulum intestinal [Unknown]
  - Dehydration [Recovered/Resolved]
  - Weight decreased [Unknown]
  - Acute kidney injury [Unknown]
  - Peptic ulcer [Unknown]
  - Large intestine polyp [Unknown]

NARRATIVE: CASE EVENT DATE: 20120506
